FAERS Safety Report 10239267 (Version 3)
Quarter: 2014Q3

REPORT INFORMATION
  Report Type: Spontaneous
  Country: US (occurrence: US)
  Receive Date: 20140616
  Receipt Date: 20140702
  Transmission Date: 20150326
  Serious: No
  Sender: FDA-Public Use
  Company Number: US-VERTEX PHARMACEUTICALS INC-2014-002637

PATIENT
  Sex: Male

DRUGS (3)
  1. INCIVEK [Suspect]
     Active Substance: TELAPREVIR
     Indication: LIVER DISORDER
     Dosage: UNK
     Route: 065
  2. PEGYLATED INTERFERON ALPHA NOS [Suspect]
     Active Substance: PEGINTERFERON ALFA-2A OR PEGINTERFERON ALFA-2B
     Indication: HEPATITIS C
     Dosage: UNK
     Route: 065
  3. RIBAVIRIN. [Suspect]
     Active Substance: RIBAVIRIN
     Indication: HEPATITIS C
     Dosage: UNK
     Route: 065

REACTIONS (15)
  - Migraine [Unknown]
  - Regurgitation [Unknown]
  - Dizziness [Unknown]
  - Abdominal pain upper [Unknown]
  - Weight decreased [Unknown]
  - Nail disorder [Unknown]
  - Bedridden [Unknown]
  - Nail discolouration [Unknown]
  - Dyspnoea [Unknown]
  - Gait disturbance [Unknown]
  - Tooth fracture [Unknown]
  - Myalgia [Unknown]
  - Diarrhoea [Unknown]
  - Tooth erosion [Unknown]
  - Asthenia [Unknown]

NARRATIVE: CASE EVENT DATE: 201406
